FAERS Safety Report 22927457 (Version 4)
Quarter: 2023Q4

REPORT INFORMATION
  Report Type: Report from Study
  Country: US (occurrence: None)
  Receive Date: 20230911
  Receipt Date: 20231103
  Transmission Date: 20240110
  Serious: Yes (Hospitalization)
  Sender: FDA-Public Use
  Company Number: US-ROCHE-3417394

PATIENT
  Age: 84 Year
  Sex: Female
  Weight: 81.19 kg

DRUGS (2)
  1. MOSUNETUZUMAB [Suspect]
     Active Substance: MOSUNETUZUMAB
     Indication: B-cell lymphoma
     Dosage: ON, 25/JUL/2023, MOST RECENT DOSE (5MG) OF STUDY DRUG MOSUNETUZUMAB PRIOR TO AE/SAE
     Route: 058
     Dates: start: 20230703
  2. FUROSEMIDE [Concomitant]
     Active Substance: FUROSEMIDE
     Indication: Oedema peripheral
     Route: 048
     Dates: start: 20230711

REACTIONS (1)
  - Cerebral haemorrhage [Recovered/Resolved]

NARRATIVE: CASE EVENT DATE: 20230901
